FAERS Safety Report 5765237-8 (Version None)
Quarter: 2008Q2

REPORT INFORMATION
  Report Type: 
  Country: None (occurrence: None)
  Receive Date: 20080602
  Receipt Date: 20080206
  Transmission Date: 20081010
  Serious: No
  Sender: FDA-Public Use
  Company Number: PHEH2008US01635

PATIENT
  Age: 74 Year
  Sex: Female
  Weight: 103.4 kg

DRUGS (5)
  1. TEKTURNA [Suspect]
     Indication: HYPERTENSION
     Dosage: 150 MG, QD, ORAL
     Route: 048
     Dates: start: 20080128, end: 20080204
  2. SYNTHROID [Concomitant]
  3. DIOVAN [Concomitant]
  4. NEBIVOLOL HCL [Concomitant]
  5. LANTUS [Concomitant]

REACTIONS (4)
  - HYPOAESTHESIA [None]
  - MUSCLE TIGHTNESS [None]
  - PRURITUS [None]
  - SKIN DISORDER [None]
